FAERS Safety Report 16225902 (Version 1)
Quarter: 2019Q2

REPORT INFORMATION
  Report Type: Spontaneous
  Country: US (occurrence: US)
  Receive Date: 20190423
  Receipt Date: 20190423
  Transmission Date: 20190711
  Serious: No
  Sender: FDA-Public Use
  Company Number: US-AMGEN-USASP2019062278

PATIENT
  Age: 74 Year
  Sex: Male

DRUGS (14)
  1. NEUPOGEN [Suspect]
     Active Substance: FILGRASTIM
     Dosage: UNK UNK, QWK
     Route: 065
  2. GABAPENTIN. [Concomitant]
     Active Substance: GABAPENTIN
     Dosage: 600 MILLIGRAM, BID
  3. ATORVASTATIN [Concomitant]
     Active Substance: ATORVASTATIN
  4. DUTASTERIDE. [Concomitant]
     Active Substance: DUTASTERIDE
  5. NEUPOGEN [Suspect]
     Active Substance: FILGRASTIM
     Dosage: UNK UNK, 2 TIMES/WK
     Route: 065
  6. SYMPROIC [Concomitant]
     Active Substance: NALDEMEDINE
  7. FENTANYL. [Concomitant]
     Active Substance: FENTANYL
  8. ACYCLOVIR. [Concomitant]
     Active Substance: ACYCLOVIR
  9. CARVEDILOL. [Concomitant]
     Active Substance: CARVEDILOL
  10. ALPRAZOLAM. [Concomitant]
     Active Substance: ALPRAZOLAM
  11. ALLOPURINOL. [Concomitant]
     Active Substance: ALLOPURINOL
  12. RAPAFLO [Concomitant]
     Active Substance: SILODOSIN
  13. NEUPOGEN [Suspect]
     Active Substance: FILGRASTIM
     Indication: NEUTROPENIA
     Dosage: UNK UNK, 3 TIMES/WK
     Route: 065
     Dates: start: 201710
  14. IMBRUVICA [Concomitant]
     Active Substance: IBRUTINIB
     Indication: CHRONIC LYMPHOCYTIC LEUKAEMIA
     Dosage: UNK (TAKING 3 NOW ONLY TAKING 2 FOR LAST YEAR OR SO)

REACTIONS (1)
  - Neutrophil count decreased [Not Recovered/Not Resolved]

NARRATIVE: CASE EVENT DATE: 2018
